FAERS Safety Report 11038401 (Version 1)
Quarter: 2015Q2

REPORT INFORMATION
  Report Type: Report from Study
  Country: HU (occurrence: HU)
  Receive Date: 20150416
  Receipt Date: 20150416
  Transmission Date: 20150821
  Serious: Yes (Death, Hospitalization)
  Sender: FDA-Public Use
  Company Number: HU-BAYER-2015-025406

PATIENT
  Age: 77 Year
  Sex: Male
  Weight: 63 kg

DRUGS (3)
  1. NEXAVAR [Suspect]
     Active Substance: SORAFENIB
     Indication: HEPATOCELLULAR CARCINOMA
     Dosage: DAILY DOSE 600 MG
     Route: 048
     Dates: start: 20150221, end: 20150325
  2. SPIRIVA [Concomitant]
     Active Substance: TIOTROPIUM BROMIDE MONOHYDRATE
     Dosage: 1 CAPSULE IN MORNING
  3. ATIMOS [Concomitant]
     Active Substance: FORMOTEROL
     Dosage: 2 X 1 DAILY

REACTIONS (9)
  - Tricuspid valve incompetence [Fatal]
  - Hepatocellular carcinoma [Fatal]
  - Dehydration [None]
  - Hypotension [None]
  - Skin reaction [Recovered/Resolved]
  - Fatigue [Recovered/Resolved]
  - Blood glucose decreased [None]
  - Decreased appetite [Recovered/Resolved]
  - Decreased appetite [Not Recovered/Not Resolved]

NARRATIVE: CASE EVENT DATE: 20150224
